FAERS Safety Report 18330162 (Version 3)
Quarter: 2020Q4

REPORT INFORMATION
  Report Type: Report from Study
  Country: US (occurrence: US)
  Receive Date: 20200930
  Receipt Date: 20201125
  Transmission Date: 20210113
  Serious: Yes (Other)
  Sender: FDA-Public Use
  Company Number: US-PFIZER INC-2020366674

PATIENT

DRUGS (2)
  1. THROMBIN [Suspect]
     Active Substance: THROMBIN
     Indication: HAEMOSTASIS
     Dosage: RECONSTITUTED TO 1000 U/ML
  2. GELFOAM [Suspect]
     Active Substance: GELATIN\THROMBIN HUMAN
     Indication: HAEMOSTASIS
     Dosage: UNK, (RECONSTITUTED TO 1000 U/ML) 12 OR 100

REACTIONS (1)
  - Post procedural haemorrhage [Recovered/Resolved]
